FAERS Safety Report 6692508 (Version 2)
Quarter: 2014Q1

REPORT INFORMATION
  Report Type: Spontaneous
  Country: US (occurrence: None)
  Receive Date: 20080303
  Receipt Date: 20140304
  Transmission Date: 20141002
  Serious: Yes (Hospitalization, Other)
  Sender: FDA-Public Use
  Company Number: RB-5190-2007

PATIENT
  Sex: 0

DRUGS (4)
  1. SUBOXONE (8/8/8/8 MG) [Suspect]
     Indication: DRUG DEPENDENCE
     Route: 064
     Dates: start: 20060416, end: 20060522
  2. SUBUTEX 8 MG [Suspect]
     Indication: DRUG DEPENDENCE
     Route: 064
     Dates: start: 20060718, end: 20060814
  3. COCAINE [Concomitant]
  4. VALIUM [Concomitant]

REACTIONS (2)
  - Maternal exposure during pregnancy [None]
  - Drug withdrawal syndrome neonatal [None]
